FAERS Safety Report 5403507-3 (Version None)
Quarter: 2007Q3

REPORT INFORMATION
  Report Type: 
  Country: None (occurrence: None)
  Receive Date: 20070713
  Receipt Date: 20070425
  Transmission Date: 20080115
  Serious: Yes (Other)
  Sender: FDA-Public Use
  Company Number: US-JNJFOC-20060601787

PATIENT
  Age: 22 Year
  Sex: Female
  Weight: 69.8539 kg

DRUGS (3)
  1. ORTHO EVRA [Suspect]
     Indication: DRUG USE FOR UNKNOWN INDICATION
     Dosage: TRANSDERMAL
     Route: 062
     Dates: start: 20030228, end: 20031216
  2. IMITREX [Concomitant]
  3. DIET PILLS (DIET FORMULATION FOR TREATMENT OF OBESITY) [Concomitant]

REACTIONS (5)
  - DRUG EXPOSURE DURING PREGNANCY [None]
  - IRON DEFICIENCY [None]
  - PREMATURE LABOUR [None]
  - UNINTENDED PREGNANCY [None]
  - VITAMIN B12 DEFICIENCY [None]
